FAERS Safety Report 5305718-4 (Version None)
Quarter: 2007Q2

REPORT INFORMATION
  Report Type: 
  Country: None (occurrence: None)
  Receive Date: 20070424
  Receipt Date: 20070413
  Transmission Date: 20071010
  Serious: Yes (Other)
  Sender: FDA-Public Use
  Company Number: US-AVENTIS-200712620US

PATIENT
  Age: 77 Year
  Sex: Female

DRUGS (6)
  1. LANTUS [Suspect]
     Indication: DIABETES MELLITUS NON-INSULIN-DEPENDENT
     Dates: start: 20061001
  2. COREG [Suspect]
     Indication: HYPERTENSION
     Dosage: DOSE: UNK
     Dates: start: 20070412, end: 20070412
  3. MAVIK [Concomitant]
     Indication: HYPERTENSION
     Dosage: DOSE: UNK
  4. NOVOLOG [Concomitant]
     Dosage: DOSE: UNK
  5. ASPIRIN [Concomitant]
     Dosage: DOSE: UNK
  6. THALIDOMIDE [Concomitant]
     Indication: MULTIPLE MYELOMA
     Dosage: DOSE: UNK

REACTIONS (5)
  - BLOOD GLUCOSE INCREASED [None]
  - DEPRESSED LEVEL OF CONSCIOUSNESS [None]
  - DRUG INTERACTION [None]
  - FATIGUE [None]
  - UNRESPONSIVE TO STIMULI [None]
